FAERS Safety Report 7109045-4 (Version None)
Quarter: 2010Q4

REPORT INFORMATION
  Report Type: 
  Country: None (occurrence: None)
  Receive Date: 20101117
  Receipt Date: 20101108
  Transmission Date: 20110411
  Serious: Yes (Hospitalization, Other)
  Sender: FDA-Public Use
  Company Number: US-ASTRAZENECA-2009SE33162

PATIENT
  Age: 744 Month
  Sex: Female
  Weight: 106.1 kg

DRUGS (16)
  1. SYMBICORT [Suspect]
     Indication: ASTHMA
     Dosage: 80/4.5 UG
     Route: 055
     Dates: start: 20091204, end: 20091221
  2. SYMBICORT [Suspect]
     Dosage: 160/4.5 UG
     Route: 055
     Dates: start: 20100701
  3. NEXIUM [Suspect]
     Route: 048
  4. NEXIUM [Suspect]
     Route: 048
  5. CRESTOR [Suspect]
     Route: 048
     Dates: start: 20091201
  6. OMNARIS [Concomitant]
  7. XYZAL [Concomitant]
  8. VENTOLIN [Concomitant]
  9. PREDNISONE [Concomitant]
  10. ATENOLOL [Concomitant]
  11. LISINOPRIL AND HYDROCHLOROTHIAZIDE [Concomitant]
  12. XANAX [Concomitant]
  13. ELAVIL [Concomitant]
  14. ZYRTEC (GENERIC) [Concomitant]
  15. ACIDOPHILOUS [Concomitant]
  16. ASPIRIN [Concomitant]

REACTIONS (9)
  - ANGIOPLASTY [None]
  - CEREBROVASCULAR ACCIDENT [None]
  - DIPLOPIA [None]
  - DYSPHONIA [None]
  - DYSPNOEA [None]
  - HEADACHE [None]
  - INCORRECT DOSE ADMINISTERED [None]
  - INSOMNIA [None]
  - LACRIMATION INCREASED [None]
